FAERS Safety Report 20329513 (Version 2)
Quarter: 2022Q1

REPORT INFORMATION
  Report Type: Spontaneous
  Country: GB (occurrence: GB)
  Receive Date: 20220112
  Receipt Date: 20220217
  Transmission Date: 20220423
  Serious: Yes (Other)
  Sender: FDA-Public Use
  Company Number: GB-BEH-2022140592

PATIENT
  Age: 81 Year
  Sex: Female

DRUGS (2)
  1. HIZENTRA [Suspect]
     Active Substance: HUMAN IMMUNOGLOBULIN G
     Indication: Product used for unknown indication
     Dosage: UNK UNK, QW
     Route: 065
     Dates: start: 20211227
  2. HIZENTRA [Suspect]
     Active Substance: HUMAN IMMUNOGLOBULIN G
     Dosage: UNK UNK, QW
     Route: 065

REACTIONS (5)
  - SARS-CoV-2 test positive [Unknown]
  - Lower respiratory tract infection [Unknown]
  - Malaise [Unknown]
  - Lethargy [Unknown]
  - Body temperature increased [Unknown]

NARRATIVE: CASE EVENT DATE: 20211227
